FAERS Safety Report 11505648 (Version 1)
Quarter: 2015Q3

REPORT INFORMATION
  Report Type: Spontaneous
  Country: US (occurrence: US)
  Receive Date: 20150915
  Receipt Date: 20150915
  Transmission Date: 20151125
  Serious: No
  Sender: FDA-Public Use
  Company Number: US-ROCHE-790973

PATIENT
  Sex: Male
  Weight: 59 kg

DRUGS (5)
  1. PEGASYS [Suspect]
     Active Substance: PEGINTERFERON ALFA-2A
     Indication: CHRONIC HEPATITIS C
     Route: 058
  2. SYMBICORT [Concomitant]
     Active Substance: BUDESONIDE\FORMOTEROL FUMARATE DIHYDRATE
     Route: 065
  3. COMBIVENT [Concomitant]
     Active Substance: ALBUTEROL SULFATE\IPRATROPIUM BROMIDE
     Route: 065
  4. NAPROSYN [Concomitant]
     Active Substance: NAPROXEN
     Route: 065
  5. COPEGUS [Suspect]
     Active Substance: RIBAVIRIN
     Indication: CHRONIC HEPATITIS C
     Route: 048

REACTIONS (7)
  - Abdominal pain [Unknown]
  - Headache [Unknown]
  - Diarrhoea [Unknown]
  - Productive cough [Unknown]
  - Insomnia [Unknown]
  - Tremor [Unknown]
  - Epistaxis [Unknown]
